FAERS Safety Report 7898630-8 (Version None)
Quarter: 2011Q4

REPORT INFORMATION
  Report Type: 
  Country: None (occurrence: None)
  Receive Date: 20111103
  Receipt Date: 20111027
  Transmission Date: 20120403
  Serious: Yes (Hospitalization)
  Sender: FDA-Public Use
  Company Number: SP05328

PATIENT
  Age: 46 Year
  Sex: Female

DRUGS (3)
  1. RELISTOR [Suspect]
     Dosage: (12 MG), SUBCUTANEOUS
     Route: 058
  2. HYDROMORPHONE (SUSTAINED-RELEASE CAPSULE) [Concomitant]
  3. FENTANYL [Concomitant]

REACTIONS (2)
  - VOMITING [None]
  - NAUSEA [None]
